FAERS Safety Report 9767009 (Version 1)
Quarter: 2013Q4

REPORT INFORMATION
  Report Type: Spontaneous
  Country: US (occurrence: US)
  Receive Date: 20131217
  Receipt Date: 20131217
  Transmission Date: 20140711
  Serious: No
  Sender: FDA-Public Use
  Company Number: US-GLAXOSMITHKLINE-A1036837A

PATIENT
  Age: 73 Year
  Sex: Female

DRUGS (6)
  1. VOTRIENT [Suspect]
     Indication: RENAL CELL CARCINOMA
     Dosage: 1CAP PER DAY
     Route: 048
     Dates: start: 20130806
  2. GLIPIZIDE [Concomitant]
  3. ACTOS [Concomitant]
  4. AMLODIPINE [Concomitant]
  5. BYSTOLIC [Concomitant]
  6. FERROUS SULFATE [Concomitant]

REACTIONS (3)
  - Vomiting [Not Recovered/Not Resolved]
  - Decreased appetite [Not Recovered/Not Resolved]
  - Abdominal pain lower [Not Recovered/Not Resolved]
